FAERS Safety Report 6101635-0 (Version None)
Quarter: 2009Q1

REPORT INFORMATION
  Report Type: 
  Country: None (occurrence: None)
  Receive Date: 20090227
  Receipt Date: 20090218
  Transmission Date: 20090719
  Serious: Yes (Hospitalization)
  Sender: FDA-Public Use
  Company Number: B0561080A

PATIENT
  Age: 79 Year
  Sex: Male
  Weight: 77.8372 kg

DRUGS (31)
  1. ASPIRIN [Suspect]
     Indication: CORONARY ARTERY DISEASE
     Dosage: ORAL
     Route: 048
  2. BLINDED TRIAL MEDICATION (FORMULATION UNKNOWN) (BLINDED TRIAL MEDICATI [Suspect]
     Indication: PROPHYLAXIS
     Dates: start: 20090203, end: 20090203
  3. ATORVASTATIN CALCIUM [Concomitant]
  4. COLCHICINE [Concomitant]
  5. DAPSONE [Concomitant]
  6. DARIFENACIN [Concomitant]
  7. ENALAPRIL MALEATE [Concomitant]
  8. METOPROLOL TARTRATE [Concomitant]
  9. HUMAN INT/LONG INSULIN [Concomitant]
  10. INSULIN LISPRO [Concomitant]
  11. OMEPRAZOLE [Concomitant]
  12. PREGABALIN [Concomitant]
  13. TAMSULOSIN HCL [Concomitant]
  14. OXYBUTYNIN CHLORIDE [Concomitant]
  15. INT./LONG-ACTING INSULIN [Concomitant]
  16. SILDENAFIL CITRATE [Concomitant]
  17. MULTI-VITAMIN [Concomitant]
  18. AMINOCAPROIC ACID [Concomitant]
  19. ADRENALINE [Concomitant]
  20. FRUSEMIDE [Concomitant]
  21. FENTANYL-25 [Concomitant]
  22. MORPHINE SULFATE [Concomitant]
  23. DEXTROSE [Concomitant]
  24. NORADRENALINE ACID TART. [Concomitant]
  25. SODIUM NITROPRUSSIDE [Concomitant]
  26. POTASSIUM CHLORIDE [Concomitant]
  27. GLUCAGON [Concomitant]
  28. INT./LONG-ACTING INSULIN [Concomitant]
  29. HUMAN INSULIN [Concomitant]
  30. INSULIN [Concomitant]
  31. VANCOMYCIN [Concomitant]

REACTIONS (2)
  - ANAEMIA [None]
  - CONDITION AGGRAVATED [None]
